FAERS Safety Report 14900123 (Version 1)
Quarter: 2018Q2

REPORT INFORMATION
  Report Type: Spontaneous
  Country: FR (occurrence: FR)
  Receive Date: 20180516
  Receipt Date: 20180516
  Transmission Date: 20180711
  Serious: Yes (Other)
  Sender: FDA-Public Use
  Company Number: FR-MERCK KGAA-2047884

PATIENT
  Age: 65 Year
  Sex: Female

DRUGS (1)
  1. NOVOTHYROX [Suspect]
     Active Substance: LEVOTHYROXINE SODIUM
     Indication: POST PROCEDURAL HYPOTHYROIDISM
     Dates: start: 20170609

REACTIONS (36)
  - Tinnitus [None]
  - Ocular hyperaemia [None]
  - Gingivitis [None]
  - Visual impairment [None]
  - Blood cholesterol increased [None]
  - Abscess [None]
  - Vulvovaginal mycotic infection [None]
  - Hypotension [None]
  - Irritability [None]
  - Ulcer [None]
  - Face oedema [None]
  - Insomnia [None]
  - Myalgia [None]
  - Malaise [None]
  - Blood thyroid stimulating hormone abnormal [None]
  - Oral pain [None]
  - Anal fungal infection [None]
  - Fear of falling [None]
  - Rash papular [None]
  - Headache [None]
  - Muscle spasms [None]
  - General physical health deterioration [None]
  - Dyspnoea [None]
  - Mood swings [None]
  - Pruritus [None]
  - Palpitations [None]
  - Major depression [None]
  - Dizziness [None]
  - Abdominal distension [None]
  - Visual acuity reduced [None]
  - Eyelid oedema [None]
  - Glossitis [None]
  - Drug hypersensitivity [None]
  - Urticaria [None]
  - Tremor [None]
  - Skin disorder [None]

NARRATIVE: CASE EVENT DATE: 20170707
